FAERS Safety Report 24990766 (Version 1)
Quarter: 2025Q1

REPORT INFORMATION
  Report Type: Spontaneous
  Country: US (occurrence: US)
  Receive Date: 20250220
  Receipt Date: 20250220
  Transmission Date: 20250408
  Serious: Yes (Other)
  Sender: AMGEN
  Company Number: US-AMGEN-USASP2025028582

PATIENT
  Age: 31 Year
  Sex: Female

DRUGS (3)
  1. PREDNISONE [Suspect]
     Active Substance: PREDNISONE
     Indication: Myopathy
     Route: 065
  2. SOLU-MEDROL [Concomitant]
     Active Substance: METHYLPREDNISOLONE SODIUM SUCCINATE
     Indication: Myopathy
  3. Immunoglobulin [Concomitant]
     Indication: Myopathy
     Route: 040

REACTIONS (3)
  - Myocarditis [Unknown]
  - Treatment noncompliance [Unknown]
  - Off label use [Unknown]
